FAERS Safety Report 5324032-4 (Version None)
Quarter: 2007Q2

REPORT INFORMATION
  Report Type: 
  Country: None (occurrence: None)
  Receive Date: 20070509
  Receipt Date: 20070509
  Transmission Date: 20071010
  Serious: Yes (Hospitalization)
  Sender: FDA-Public Use
  Company Number: None

PATIENT
  Age: 49 Year
  Sex: Female
  Weight: 80.7403 kg

DRUGS (2)
  1. LEUKINE [Suspect]
     Indication: BREAST CANCER
     Dosage: 500 MCG DAILY SQ
     Route: 058
     Dates: start: 20070427, end: 20070427
  2. LEUKINE [Suspect]
     Indication: CHEMOTHERAPY
     Dosage: 500 MCG DAILY SQ
     Route: 058
     Dates: start: 20070427, end: 20070427

REACTIONS (12)
  - ABDOMINAL PAIN [None]
  - ABDOMINAL PAIN LOWER [None]
  - ADVERSE DRUG REACTION [None]
  - DELIRIUM [None]
  - DRUG HYPERSENSITIVITY [None]
  - METRORRHAGIA [None]
  - NAUSEA [None]
  - RECTAL HAEMORRHAGE [None]
  - THROAT TIGHTNESS [None]
  - URINARY INCONTINENCE [None]
  - VAGINAL HAEMORRHAGE [None]
  - VOMITING [None]
